FAERS Safety Report 16314013 (Version 1)
Quarter: 2019Q2

REPORT INFORMATION
  Report Type: Spontaneous
  Country: US (occurrence: US)
  Receive Date: 20190515
  Receipt Date: 20190515
  Transmission Date: 20190711
  Serious: No
  Sender: FDA-Public Use
  Company Number: US-PFIZER INC-2019201275

PATIENT
  Age: 32 Year
  Sex: Female
  Weight: 108.86 kg

DRUGS (1)
  1. FENTANYL CITRATE. [Suspect]
     Active Substance: FENTANYL CITRATE
     Dosage: UNK

REACTIONS (3)
  - Occupational exposure to product [Unknown]
  - Exposure via skin contact [Unknown]
  - Withdrawal syndrome [Unknown]
